FAERS Safety Report 6075340-3 (Version None)
Quarter: 2009Q1

REPORT INFORMATION
  Report Type: 
  Country: None (occurrence: None)
  Receive Date: 20090212
  Receipt Date: 20090130
  Transmission Date: 20090719
  Serious: Yes (Other)
  Sender: FDA-Public Use
  Company Number: HQ0026323APR2001

PATIENT
  Sex: Male

DRUGS (2)
  1. REFACTO [Suspect]
     Indication: PROPHYLAXIS
     Dates: start: 20000812
  2. REFACTO [Suspect]
     Dosage: 500IU EVERY SECOND DAY
     Dates: start: 20020316

REACTIONS (1)
  - DRUG SPECIFIC ANTIBODY PRESENT [None]
